FAERS Safety Report 12483323 (Version 1)
Quarter: 2016Q2

REPORT INFORMATION
  Report Type: Spontaneous
  Country: JP (occurrence: JP)
  Receive Date: 20160621
  Receipt Date: 20160621
  Transmission Date: 20160815
  Serious: Yes (Other)
  Sender: FDA-Public Use
  Company Number: PHJP2016JP011870

PATIENT
  Age: 80 Year
  Sex: Female

DRUGS (4)
  1. AMLODIPINE [Suspect]
     Active Substance: AMLODIPINE BESYLATE
     Indication: HYPERTENSION
     Dosage: 5 MG, UNK
     Route: 048
  2. PANTOSIN [Suspect]
     Active Substance: PANTETHINE
     Indication: CONSTIPATION
     Dosage: UNK
     Route: 048
  3. EQUA TAB [Suspect]
     Active Substance: VILDAGLIPTIN
     Indication: DIABETES MELLITUS MANAGEMENT
     Dosage: 100 MG, UNK
     Route: 048
  4. VESICARE [Suspect]
     Active Substance: SOLIFENACIN SUCCINATE
     Indication: HYPERTONIC BLADDER
     Dosage: 10 MG, UNK
     Route: 048

REACTIONS (2)
  - Pemphigoid [Recovering/Resolving]
  - Fracture [Recovered/Resolved]

NARRATIVE: CASE EVENT DATE: 20160207
